FAERS Safety Report 14959038 (Version 1)
Quarter: 2018Q2

REPORT INFORMATION
  Report Type: Spontaneous
  Country: JP (occurrence: JP)
  Receive Date: 20180531
  Receipt Date: 20180531
  Transmission Date: 20180711
  Serious: Yes (Hospitalization)
  Sender: FDA-Public Use
  Company Number: JP-BAYER-2018-101064

PATIENT
  Age: 75 Year
  Sex: Female

DRUGS (18)
  1. AVELOX [Suspect]
     Active Substance: MOXIFLOXACIN HYDROCHLORIDE
     Indication: PNEUMONIA
     Dosage: 400 MG, QD
     Route: 048
     Dates: start: 20180428, end: 20180504
  2. WARFARIN [Concomitant]
     Active Substance: WARFARIN
  3. TAKEPRON [Concomitant]
     Active Substance: LANSOPRAZOLE
  4. MERISLON [Concomitant]
     Active Substance: BETAHISTINE MESILATE
  5. PIMOBENDAN [Concomitant]
     Active Substance: PIMOBENDAN
  6. MONTELUKAST [Concomitant]
     Active Substance: MONTELUKAST SODIUM
  7. PURSENNID [Concomitant]
     Active Substance: SENNOSIDES A AND B
  8. DIART [Concomitant]
     Active Substance: AZOSEMIDE
  9. FERROMIA [Concomitant]
     Active Substance: SODIUM FERROUS CITRATE
  10. EBASTEL [Concomitant]
     Active Substance: EBASTINE
  11. ADALAT [Concomitant]
     Active Substance: NIFEDIPINE
  12. ALDACTONE [POTASSIUM CANRENOATE] [Concomitant]
     Active Substance: CANRENOATE POTASSIUM
  13. LANIRAPID [Concomitant]
     Active Substance: METILDIGOXIN
  14. MUCOSOLVAN [Concomitant]
     Active Substance: AMBROXOL HYDROCHLORIDE
  15. MUCODYNE [Concomitant]
     Active Substance: CARBOCYSTEINE
  16. DORNASE ALFA. [Concomitant]
     Active Substance: DORNASE ALFA
  17. MEDICON [Concomitant]
     Active Substance: DEXTROMETHORPHAN HYDROBROMIDE
  18. MAGMITT [Concomitant]
     Active Substance: MAGNESIUM OXIDE

REACTIONS (5)
  - Urinary tract infection [Recovering/Resolving]
  - Chromaturia [Recovering/Resolving]
  - Blood creatine phosphokinase increased [Recovering/Resolving]
  - Sepsis [Recovering/Resolving]
  - Myalgia [Recovering/Resolving]

NARRATIVE: CASE EVENT DATE: 20180525
